FAERS Safety Report 11938079 (Version 1)
Quarter: 2016Q1

REPORT INFORMATION
  Report Type: Other
  Country: MY (occurrence: MY)
  Receive Date: 20160122
  Receipt Date: 20160122
  Transmission Date: 20160526
  Serious: Yes (Other)
  Sender: FDA-Public Use
  Company Number: MY-LUPIN PHARMACEUTICALS INC.-2016-00373

PATIENT
  Age: 52 Year
  Sex: Female

DRUGS (3)
  1. TRAMADOL. [Suspect]
     Active Substance: TRAMADOL
     Indication: ARTHRALGIA
     Route: 065
  2. TRAMADOL. [Suspect]
     Active Substance: TRAMADOL
     Route: 065
  3. ALPRAZOLAM. [Suspect]
     Active Substance: ALPRAZOLAM
     Indication: INSOMNIA
     Route: 065

REACTIONS (4)
  - Overdose [Unknown]
  - Abnormal behaviour [Recovered/Resolved]
  - Drug dependence [Unknown]
  - Drug withdrawal syndrome [Recovered/Resolved]
